FAERS Safety Report 6464679-5 (Version None)
Quarter: 2009Q4

REPORT INFORMATION
  Report Type: 
  Country: None (occurrence: None)
  Receive Date: 20091124
  Receipt Date: 20091112
  Transmission Date: 20100525
  Serious: Yes (Other)
  Sender: FDA-Public Use
  Company Number: SPV1-2009-02353

PATIENT
  Sex: Male

DRUGS (1)
  1. PENTASA [Suspect]
     Dosage: ORAL
     Route: 048
     Dates: start: 20000901, end: 20050901

REACTIONS (2)
  - ANAEMIA [None]
  - MULTIPLE MYELOMA [None]
